FAERS Safety Report 7259151-9 (Version None)
Quarter: 2011Q1

REPORT INFORMATION
  Report Type: 
  Country: None (occurrence: None)
  Receive Date: 20110129
  Receipt Date: 20100623
  Transmission Date: 20110831
  Serious: No
  Sender: FDA-Public Use
  Company Number: US-ABBOTT-10P-163-0653255-00

PATIENT
  Age: 42 Year
  Sex: Female

DRUGS (5)
  1. PRILOSEC [Concomitant]
     Indication: GASTROOESOPHAGEAL REFLUX DISEASE
  2. LIALDA [Concomitant]
     Indication: CROHN'S DISEASE
  3. HUMIRA [Suspect]
     Indication: CROHN'S DISEASE
     Dates: start: 20100610
  4. ZOLOFT [Concomitant]
     Indication: PANIC ATTACK
  5. PANICAL [Concomitant]
     Indication: PROBIOTIC THERAPY

REACTIONS (1)
  - SENSATION OF PRESSURE [None]
